FAERS Safety Report 8762789 (Version 1)
Quarter: 2012Q4

REPORT INFORMATION
  Report Type: 
  Country: US (occurrence: US)
  Receive Date: 20120830
  Receipt Date: 20120830
  Transmission Date: 20130627
  Serious: Yes (Other)
  Sender: FDA-Public Use
  Company Number: US-PFIZER INC-2012209985

PATIENT
  Sex: Female

DRUGS (1)
  1. LYRICA [Suspect]
     Indication: PAIN
     Dosage: 25 mg, 1x/day

REACTIONS (4)
  - Suicidal ideation [Recovered/Resolved with Sequelae]
  - Depression [Unknown]
  - Therapeutic response unexpected [Unknown]
  - Drug ineffective [Unknown]
